FAERS Safety Report 21603315 (Version 1)
Quarter: 2022Q4

REPORT INFORMATION
  Report Type: Spontaneous
  Country: US (occurrence: US)
  Receive Date: 20221116
  Receipt Date: 20221116
  Transmission Date: 20230112
  Serious: No
  Sender: FDA-Public Use
  Company Number: US-BIOGEN-2022BI01169389

PATIENT
  Sex: Female

DRUGS (4)
  1. TECFIDERA [Suspect]
     Active Substance: DIMETHYL FUMARATE
     Indication: Multiple sclerosis
     Route: 050
  2. CEPHALEXIN [Concomitant]
     Active Substance: CEPHALEXIN
     Route: 050
  3. LEVOFLOXACIN [Concomitant]
     Active Substance: LEVOFLOXACIN
     Route: 050
  4. PREDNISONE [Concomitant]
     Active Substance: PREDNISONE
     Route: 050

REACTIONS (1)
  - Drug ineffective [Recovered/Resolved]
